FAERS Safety Report 23470413 (Version 1)
Quarter: 2024Q1

REPORT INFORMATION
  Report Type: Spontaneous
  Country: GB (occurrence: GB)
  Receive Date: 20240202
  Receipt Date: 20240202
  Transmission Date: 20240409
  Serious: Yes (Disabling)
  Sender: FDA-Public Use
  Company Number: None

PATIENT
  Age: 22 Year
  Sex: Male
  Weight: 105 kg

DRUGS (1)
  1. SERTRALINE [Suspect]
     Active Substance: SERTRALINE HYDROCHLORIDE
     Indication: Product used for unknown indication
     Dosage: 100 MILLIGRAM
     Route: 065

REACTIONS (4)
  - Depression [Recovering/Resolving]
  - Diarrhoea [Recovered/Resolved]
  - Fatigue [Recovering/Resolving]
  - Anxiety [Recovered/Resolved]

NARRATIVE: CASE EVENT DATE: 20240104
